FAERS Safety Report 5152313-6 (Version None)
Quarter: 2006Q4

REPORT INFORMATION
  Report Type: 
  Country: None (occurrence: None)
  Receive Date: 20061116
  Receipt Date: 20061107
  Transmission Date: 20070319
  Serious: Yes (Hospitalization)
  Sender: FDA-Public Use
  Company Number: FR-ROCHE-470294

PATIENT
  Age: 16 Year
  Sex: Female
  Weight: 50 kg

DRUGS (1)
  1. ROCEPHIN [Suspect]
     Indication: HYPERTHERMIA
     Dosage: FORM REPORTED AS: INJECTABLE SOLUTION.
     Route: 042
     Dates: start: 20060925, end: 20061002

REACTIONS (2)
  - COAGULATION FACTOR DECREASED [None]
  - HYPOPROTHROMBINAEMIA [None]
